FAERS Safety Report 4496302-3 (Version None)
Quarter: 2004Q3

REPORT INFORMATION
  Report Type: 
  Country: None (occurrence: None)
  Receive Date: 20040921
  Receipt Date: 20040311
  Transmission Date: 20050211
  Serious: Yes (Other)
  Sender: FDA-Public Use
  Company Number: 163-20785-04030306 (0)

PATIENT
  Age: 57 Year
  Sex: Female
  Weight: 59.9 kg

DRUGS (12)
  1. THALOMID [Suspect]
     Indication: GLIOMA
     Dosage: 500 MG, QHS, ORAL
     Route: 048
     Dates: start: 20021028, end: 20040217
  2. CELEBREX [Suspect]
     Indication: BRAIN NEOPLASM MALIGNANT
     Dosage: 400 MG, BID, ORAL
     Route: 048
     Dates: start: 20021028, end: 20040217
  3. ETOPOSIDE [Concomitant]
  4. CYCLOPHOSPHAMIDE [Concomitant]
  5. DILANTIN [Concomitant]
  6. KEPPRA [Concomitant]
  7. DEXAMETHASONE [Concomitant]
  8. OS-CAL (OS-CAL) [Concomitant]
  9. FOSAMAX [Concomitant]
  10. MULTIVITAMIN [Concomitant]
  11. COLACE (DOCUSATE SODIUM) [Concomitant]
  12. ALLEGRA [Concomitant]

REACTIONS (3)
  - CHEST DISCOMFORT [None]
  - RIB FRACTURE [None]
  - URINARY TRACT INFECTION [None]
